FAERS Safety Report 6802897-4 (Version None)
Quarter: 2010Q2

REPORT INFORMATION
  Report Type: 
  Country: None (occurrence: None)
  Receive Date: 20100628
  Receipt Date: 20100623
  Transmission Date: 20101027
  Serious: Yes (Death, Life-Threatening)
  Sender: FDA-Public Use
  Company Number: JP-ASTRAZENECA-2010SE23026

PATIENT
  Age: 74 Year
  Sex: Female
  Weight: 49 kg

DRUGS (4)
  1. IRESSA [Suspect]
     Indication: LUNG ADENOCARCINOMA
     Route: 048
     Dates: start: 20100513, end: 20100513
  2. REMINARON [Concomitant]
     Indication: DISSEMINATED INTRAVASCULAR COAGULATION
     Route: 041
     Dates: start: 20100513, end: 20100514
  3. FRESH FROZEN PLASMA [Concomitant]
     Indication: DISSEMINATED INTRAVASCULAR COAGULATION
     Route: 041
     Dates: start: 20100513, end: 20100513
  4. GLYCEOL [Concomitant]
     Indication: CEREBRAL HAEMORRHAGE
     Route: 041
     Dates: start: 20100513, end: 20100513

REACTIONS (3)
  - HEMIPLEGIA [None]
  - LOSS OF CONSCIOUSNESS [None]
  - SUPERIOR VENA CAVAL OCCLUSION [None]
